FAERS Safety Report 4653319-3 (Version None)
Quarter: 2005Q2

REPORT INFORMATION
  Report Type: 
  Country: None (occurrence: None)
  Receive Date: 20050505
  Receipt Date: 20050502
  Transmission Date: 20051028
  Serious: Yes (Hospitalization)
  Sender: FDA-Public Use
  Company Number: 200511512FR

PATIENT
  Age: 15 Year
  Sex: Male
  Weight: 50 kg

DRUGS (19)
  1. FLAGYL [Suspect]
     Route: 042
  2. XANAX [Suspect]
     Route: 048
  3. VFEND [Suspect]
     Indication: ASPERGILLOSIS
     Route: 048
     Dates: start: 20050216
  4. CANCIDAS [Suspect]
     Indication: ASPERGILLOSIS
     Route: 042
     Dates: start: 20050216
  5. STILNOX [Suspect]
     Route: 048
  6. BACTRIM [Suspect]
     Route: 048
  7. LEVOCARNIL [Concomitant]
  8. ZESTRIL [Concomitant]
  9. MOTILIUM [Concomitant]
  10. LACTEOL [Concomitant]
  11. MOPRAL [Concomitant]
  12. PRIMPERAN TAB [Concomitant]
  13. SPASFON [Concomitant]
  14. VITAMIN B1-B6 [Concomitant]
  15. VITAMIN K [Concomitant]
  16. CERNEVIT-12 [Concomitant]
  17. TRACUTIL [Concomitant]
  18. DIPEPTIVEN [Concomitant]
  19. ELVORINE [Concomitant]

REACTIONS (3)
  - NEUROPATHY PERIPHERAL [None]
  - OEDEMA PERIPHERAL [None]
  - PARAESTHESIA [None]
